FAERS Safety Report 8356510-8 (Version None)
Quarter: 2012Q2

REPORT INFORMATION
  Report Type: 
  Country: None (occurrence: None)
  Receive Date: 20120511
  Receipt Date: 20120511
  Transmission Date: 20120825
  Serious: No
  Sender: FDA-Public Use
  Company Number: None

PATIENT
  Age: 78 Year
  Sex: Male

DRUGS (1)
  1. ARANESP [Suspect]
     Indication: ANAEMIA
     Dosage: 200 MCG EVERY 2 WEEK SUBCUTANEOUSLY
     Route: 058
     Dates: start: 20111129, end: 20120105

REACTIONS (2)
  - RASH ERYTHEMATOUS [None]
  - HYPERSENSITIVITY [None]
